FAERS Safety Report 20007884 (Version 1)
Quarter: 2021Q4

REPORT INFORMATION
  Report Type: Spontaneous
  Country: NL (occurrence: NL)
  Receive Date: 20211028
  Receipt Date: 20211028
  Transmission Date: 20220303
  Serious: Yes (Other)
  Sender: FDA-Public Use
  Company Number: None

PATIENT
  Weight: 55 kg

DRUGS (11)
  1. AMOXICILLIN [Suspect]
     Active Substance: AMOXICILLIN
     Indication: Bacterial infection
     Dosage: 1500 MILLIGRAM DAILY; 1 CAPSULE 3 TIMES A DAY:THERAPY END DATE :ASKU
     Dates: start: 20210929
  2. FLECAINIDE  / Brand name not specified [Concomitant]
     Dosage: THERAPY START DATE:THERAPY END DATE:ASKU
  3. FLUVASTATINE  / Brand name not specified [Concomitant]
     Dosage: THERAPY START DATE:THERAPY END DATE:ASKU
  4. FERROSULFAAT MGA  / FERO GRADUMET   MGA  FE [Concomitant]
     Dosage: THERAPY START DATE:THERAPY END DATE:ASKU
  5. CALCIUMCARB/COLECALC (500MG CA) / TACAL D3 500MG/400IE MUNT [Concomitant]
     Dosage: THERAPY START DATE:THERAPY END DATE:ASKU:FORMSTRENGTH:500MG/400IE
  6. ACETYLSALICYLZUUR  / Brand name not specified [Concomitant]
     Dosage: THERAPY START DATE:THERAPY START DATE:ASKU
  7. PREDNISOLONE [Concomitant]
     Active Substance: PREDNISOLONE
     Dosage: 7.5MILLIGRAMTHERAPY START DATE:THERAPY END DATE :ASKU
  8. METOPROLOL  MGA  (SUCCINAAT) / Brand name not specified [Concomitant]
     Dosage: THERAPY START DATE:THERAPY END DATE :ASKU
  9. FOLIUMZUUR  / Brand name not specified [Concomitant]
     Dosage: THERAPY START DATE :THERAPY END DATE:ASKU
  10. PANTOPRAZOL  MSR / Brand name not specified [Concomitant]
     Dosage: THERAPY START DATE:THERAPY END DATE:ASKU
  11. MYCOFENOLZUUR  MSR  / MYFORTIC  MSR [Concomitant]
     Dosage: THERAPY START DATE:THERAPY END DATE:ASKU

REACTIONS (1)
  - Abdominal pain [Unknown]
